FAERS Safety Report 8259977 (Version 10)
Quarter: 2013Q1

REPORT INFORMATION
  Report Type: Report from Study
  Country: GB (occurrence: GB)
  Receive Date: 20111122
  Receipt Date: 20130318
  Transmission Date: 20140127
  Serious: Yes (Hospitalization)
  Sender: FDA-Public Use
  Company Number: GB-ROCHE-1014805

PATIENT
  Age: 54 Year
  Sex: Female
  Weight: 54.6 kg

DRUGS (5)
  1. VEMURAFENIB [Suspect]
     Indication: METASTATIC MALIGNANT MELANOMA
     Dosage: LAST DOSE TAKEN PRIOR TO SAE: 21/OCT/2011
     Route: 048
     Dates: start: 20111012
  2. MORPHINE SULFATE [Concomitant]
     Route: 065
     Dates: start: 2011
  3. PROCHLORPERAZINE [Concomitant]
     Route: 065
     Dates: start: 2011
  4. ALLOPURINOL [Concomitant]
     Route: 065
     Dates: start: 20111013
  5. TINZAPARIN [Concomitant]
     Dosage: TOTAL DIALY DOSE: 14000/IU/L
     Route: 065
     Dates: start: 20111017

REACTIONS (1)
  - Left ventricular dysfunction [Recovered/Resolved]
